FAERS Safety Report 19111483 (Version 1)
Quarter: 2021Q2

REPORT INFORMATION
  Report Type: Report from Study
  Country: US (occurrence: US)
  Receive Date: 20210408
  Receipt Date: 20210408
  Transmission Date: 20210717
  Serious: Yes (Other)
  Sender: FDA-Public Use
  Company Number: US-JNJFOC-20210401995

PATIENT
  Age: 24 Year
  Sex: Male

DRUGS (2)
  1. SPRAVATO [Suspect]
     Active Substance: ESKETAMINE
     Indication: DEPRESSION
     Dosage: 56 MG, 1 TOTAL DOSE (CURRENT TREATMENT SESSION)
     Dates: start: 20210330, end: 20210330
  2. SPRAVATO [Suspect]
     Active Substance: ESKETAMINE
     Dates: start: 20210401

REACTIONS (3)
  - Sedation [Recovered/Resolved]
  - Unevaluable event [Recovered/Resolved]
  - Dissociation [Recovered/Resolved]

NARRATIVE: CASE EVENT DATE: 20210330
